FAERS Safety Report 14631544 (Version 2)
Quarter: 2018Q2

REPORT INFORMATION
  Report Type: Spontaneous
  Country: US (occurrence: US)
  Receive Date: 20180313
  Receipt Date: 20180410
  Transmission Date: 20180711
  Serious: Yes (Other)
  Sender: FDA-Public Use
  Company Number: US-AKORN PHARMACEUTICALS-2018AKN00295

PATIENT
  Age: 22 Year
  Sex: Male
  Weight: 71.66 kg

DRUGS (1)
  1. MYORISAN [Suspect]
     Active Substance: ISOTRETINOIN
     Indication: ACNE
     Dosage: 30 MG, 1X/DAY
     Dates: start: 20171115, end: 20171116

REACTIONS (1)
  - Rectal haemorrhage [Unknown]

NARRATIVE: CASE EVENT DATE: 201711
